FAERS Safety Report 4704867-9 (Version None)
Quarter: 2005Q2

REPORT INFORMATION
  Report Type: 
  Country: None (occurrence: None)
  Receive Date: 20050630
  Receipt Date: 20050630
  Transmission Date: 20051028
  Serious: Yes (Hospitalization)
  Sender: FDA-Public Use
  Company Number: None

PATIENT
  Age: 70 Year
  Sex: Male
  Weight: 45.5 kg

DRUGS (16)
  1. AMIODARONE HCL [Suspect]
     Indication: ATRIAL FIBRILLATION
     Dosage: 800 MG   ONCE   INTRAVENOU
     Route: 042
     Dates: start: 20040326, end: 20040327
  2. AZITHROMYCIN [Suspect]
     Indication: COUGH
     Dosage: 500 MG   QD   ORAL
     Route: 048
     Dates: start: 20040325, end: 20040327
  3. DILTIAZEM [Concomitant]
  4. DIGOXIN [Concomitant]
  5. SIMVASTATIN [Concomitant]
  6. OMEPRAZOLE [Concomitant]
  7. ALBUTEROL [Concomitant]
  8. IPRATROPIUM BROMIDE [Concomitant]
  9. HYDROXYZINE [Concomitant]
  10. METHYLPREDNISOLONE [Concomitant]
  11. PROMETHAZINE [Concomitant]
  12. DOCUSATE [Concomitant]
  13. KAYEXALATE [Concomitant]
  14. PHYTONADIONE [Concomitant]
  15. BISACODYL [Concomitant]
  16. FUROSEMIDE [Concomitant]

REACTIONS (3)
  - IDIOPATHIC THROMBOCYTOPENIC PURPURA [None]
  - INTERNATIONAL NORMALISED RATIO INCREASED [None]
  - LIVER FUNCTION TEST ABNORMAL [None]
